FAERS Safety Report 12339024 (Version 1)
Quarter: 2016Q2

REPORT INFORMATION
  Report Type: Not Available
  Country: IR (occurrence: IR)
  Receive Date: 20160505
  Receipt Date: 20160505
  Transmission Date: 20160815
  Serious: Yes (Disabling)
  Sender: FDA-Public Use
  Company Number: IR-ANIPHARMA-2016-IR-000001

PATIENT
  Age: 7 Year
  Sex: Male

DRUGS (1)
  1. PHENYTOIN SODIUM (NON-SPECIFIC) [Suspect]
     Active Substance: PHENYTOIN SODIUM
     Dosage: UNKNOWN
     Route: 065

REACTIONS (5)
  - Stevens-Johnson syndrome [Unknown]
  - Blindness unilateral [Recovered/Resolved with Sequelae]
  - Conjunctivitis [Unknown]
  - Respiratory failure [Unknown]
  - Mucosal inflammation [Unknown]
